FAERS Safety Report 19385264 (Version 3)
Quarter: 2021Q3

REPORT INFORMATION
  Report Type: Spontaneous
  Country: US (occurrence: US)
  Receive Date: 20210607
  Receipt Date: 20210715
  Transmission Date: 20211014
  Serious: No
  Sender: FDA-Public Use
  Company Number: US-SA-2021SA161848

PATIENT
  Age: 70 Year
  Sex: Female

DRUGS (1)
  1. CAPRELSA [Suspect]
     Active Substance: VANDETANIB
     Indication: THYROID CANCER
     Dosage: FREQUENCY?ONCE DAILY
     Route: 048
     Dates: start: 20151020, end: 20210701

REACTIONS (4)
  - Toxicity to various agents [Unknown]
  - Polycythaemia [Unknown]
  - Systemic toxicity [Unknown]
  - Haematocrit increased [Unknown]
